FAERS Safety Report 4385653-9 (Version None)
Quarter: 2004Q2

REPORT INFORMATION
  Report Type: 
  Country: None (occurrence: None)
  Receive Date: 20040622
  Receipt Date: 20040609
  Transmission Date: 20050107
  Serious: Yes (Hospitalization)
  Sender: FDA-Public Use
  Company Number: 03P-056-0216363-00

PATIENT
  Age: 53 Year
  Sex: Female
  Weight: 76 kg

DRUGS (6)
  1. HUMIRA [Suspect]
     Indication: RHEUMATOID ARTHRITIS
     Dosage: 1 IN 2 WK, SUBCUTANEOUS
     Route: 058
     Dates: start: 20030116, end: 20030330
  2. PRAVASTATIN SOCIUM [Concomitant]
  3. FLUOXETINE HYDROCHLORIDE [Concomitant]
  4. RUTOSIDE [Concomitant]
  5. LORMETAZEPAM [Concomitant]
  6. NEDIATOR [Concomitant]

REACTIONS (2)
  - LEGIONELLA INFECTION [None]
  - LUNG DISORDER [None]
